FAERS Safety Report 7749391-4 (Version None)
Quarter: 2011Q3

REPORT INFORMATION
  Report Type: 
  Country: None (occurrence: None)
  Receive Date: 20110914
  Receipt Date: 20110902
  Transmission Date: 20111222
  Serious: Yes (Other)
  Sender: FDA-Public Use
  Company Number: PR-PFIZER INC-2010020891

PATIENT
  Sex: Female

DRUGS (3)
  1. ULTRACET [Suspect]
     Dosage: UNKNOWN DOSE THREE TIMES A DAY
  2. LYRICA [Suspect]
     Dosage: 400MG AT AN UNKNOWN FREQUENCY
  3. MILNACIPRAN [Suspect]
     Dosage: UNK

REACTIONS (1)
  - POLYCHONDRITIS [None]
